FAERS Safety Report 7931755 (Version 3)
Quarter: 2013Q3

REPORT INFORMATION
  Report Type: Spontaneous
  Country: US (occurrence: US)
  Receive Date: 20110505
  Receipt Date: 20130725
  Transmission Date: 20140515
  Serious: Yes (Other)
  Sender: FDA-Public Use
  Company Number: US-ROCHE-747611

PATIENT
  Sex: Male
  Weight: 58.1 kg

DRUGS (3)
  1. ACCUTANE [Suspect]
     Indication: ACNE
     Route: 065
     Dates: start: 199806, end: 199904
  2. ACCUTANE [Suspect]
     Route: 065
     Dates: start: 20000101, end: 20010101
  3. ADVIL [Concomitant]
     Indication: NASOPHARYNGITIS

REACTIONS (7)
  - Colitis ulcerative [Unknown]
  - Gastrointestinal injury [Unknown]
  - Depression [Unknown]
  - Inflammatory bowel disease [Unknown]
  - Irritable bowel syndrome [Unknown]
  - Dermatomyositis [Unknown]
  - Dermatitis contact [Unknown]
